FAERS Safety Report 12194099 (Version 1)
Quarter: 2016Q1

REPORT INFORMATION
  Report Type: Spontaneous
  Country: US (occurrence: US)
  Receive Date: 20160321
  Receipt Date: 20160321
  Transmission Date: 20160526
  Serious: No
  Sender: FDA-Public Use
  Company Number: US-BAYER-2016-045116

PATIENT
  Age: 86 Year
  Sex: Male
  Weight: 65.76 kg

DRUGS (2)
  1. MIRALAX [Suspect]
     Active Substance: POLYETHYLENE GLYCOL 3350
     Indication: CONSTIPATION
     Dosage: 1 DF (A TEASPOON AS A DOSE), QD
     Route: 048
  2. ST. JOSEPH ASPIRIN [Concomitant]

REACTIONS (1)
  - Circumstance or information capable of leading to medication error [None]
